FAERS Safety Report 5777039-7 (Version None)
Quarter: 2008Q2

REPORT INFORMATION
  Report Type: 
  Country: None (occurrence: None)
  Receive Date: 20080617
  Receipt Date: 20080617
  Transmission Date: 20081010
  Serious: No
  Sender: FDA-Public Use
  Company Number: None

PATIENT
  Age: 66 Year
  Sex: Female

DRUGS (12)
  1. WARFARIN SODIUM [Suspect]
     Indication: THROMBOSIS PROPHYLAXIS
     Dosage: 5/2.5 MG PO ALT. DAYS LONG TIME
     Route: 048
  2. CLONIDINE [Concomitant]
  3. PREDNISONE [Concomitant]
  4. BACTRIM DS [Concomitant]
  5. ARANESP [Concomitant]
  6. AZATHIOPRINE [Concomitant]
  7. HECTOLOL [Concomitant]
  8. PROGRAF [Concomitant]
  9. OMNICEF [Concomitant]
  10. PROVENTIL INH [Concomitant]
  11. PHOSLO [Concomitant]
  12. COZAAR [Concomitant]

REACTIONS (10)
  - BLOOD PRESSURE DECREASED [None]
  - CHILLS [None]
  - COUGH [None]
  - DIZZINESS [None]
  - FRACTION OF INSPIRED OXYGEN [None]
  - HAEMOGLOBIN DECREASED [None]
  - HEADACHE [None]
  - INTERNATIONAL NORMALISED RATIO INCREASED [None]
  - NAUSEA [None]
  - RENAL FAILURE ACUTE [None]
